FAERS Safety Report 19051588 (Version 1)
Quarter: 2021Q1

REPORT INFORMATION
  Report Type: Report from Study
  Country: US (occurrence: US)
  Receive Date: 20210324
  Receipt Date: 20210324
  Transmission Date: 20210420
  Serious: Yes (Hospitalization, Other)
  Sender: FDA-Public Use
  Company Number: US-EMD SERONO-9163425

PATIENT
  Age: 65 Year
  Sex: Female

DRUGS (1)
  1. REBIF [Suspect]
     Active Substance: INTERFERON BETA-1A
     Indication: MULTIPLE SCLEROSIS
     Route: 058
     Dates: start: 20081022

REACTIONS (6)
  - Blood sodium decreased [Unknown]
  - Hepatic enzyme decreased [Unknown]
  - COVID-19 [Unknown]
  - Malaise [Unknown]
  - Multiple sclerosis relapse [Not Recovered/Not Resolved]
  - Mental impairment [Unknown]

NARRATIVE: CASE EVENT DATE: 202011
